FAERS Safety Report 10437236 (Version 1)
Quarter: 2014Q3

REPORT INFORMATION
  Report Type: Spontaneous
  Country: PL (occurrence: PL)
  Receive Date: 20140908
  Receipt Date: 20140908
  Transmission Date: 20150326
  Serious: Yes (Other)
  Sender: FDA-Public Use
  Company Number: PL-GLAXOSMITHKLINE-B1030271A

PATIENT
  Age: 36 Year
  Sex: Female

DRUGS (1)
  1. FLIXONASE [Suspect]
     Active Substance: FLUTICASONE PROPIONATE
     Indication: RHINITIS
     Route: 065

REACTIONS (3)
  - Live birth [Unknown]
  - Meconium in amniotic fluid [Recovered/Resolved]
  - Exposure during pregnancy [Unknown]
